FAERS Safety Report 4361401-3 (Version None)
Quarter: 2004Q2

REPORT INFORMATION
  Report Type: 
  Country: None (occurrence: None)
  Receive Date: 20040517
  Receipt Date: 20040505
  Transmission Date: 20050107
  Serious: Yes (Other)
  Sender: FDA-Public Use
  Company Number: 2004017393

PATIENT
  Sex: Female

DRUGS (3)
  1. NARDIL [Suspect]
     Indication: PANIC ATTACK
     Dosage: ORAL
     Route: 048
     Dates: end: 20040211
  2. LEXAPRO [Suspect]
     Indication: ILL-DEFINED DISORDER
     Dosage: ORAL
     Route: 048
     Dates: start: 20040301
  3. ESTROGEN (ESTROGEN NOS) [Concomitant]

REACTIONS (3)
  - NAUSEA [None]
  - SOMNOLENCE [None]
  - UTERINE POLYP [None]
